FAERS Safety Report 12865576 (Version 1)
Quarter: 2016Q4

REPORT INFORMATION
  Report Type: Spontaneous
  Country: US (occurrence: US)
  Receive Date: 20161020
  Receipt Date: 20161020
  Transmission Date: 20170207
  Serious: No
  Sender: FDA-Public Use
  Company Number: US-SHIRE-US201615176

PATIENT
  Sex: Female

DRUGS (3)
  1. RESTASIS [Concomitant]
     Active Substance: CYCLOSPORINE
     Indication: DRY EYE
     Dosage: UNK, 2X/DAY:BID
     Route: 047
     Dates: start: 2011
  2. XIIDRA [Suspect]
     Active Substance: LIFITEGRAST
     Indication: DRY EYE
     Dosage: 1 GTT, 2X/DAY:BID (IN EACH EYE)
     Route: 047
     Dates: start: 20161010, end: 20161017
  3. REFRESH LIQUIGEL [Concomitant]
     Active Substance: CARBOXYMETHYLCELLULOSE SODIUM
     Indication: DRY EYE
     Dosage: UNK, 4X/DAY:QID
     Route: 047
     Dates: start: 2011

REACTIONS (2)
  - Condition aggravated [Recovered/Resolved]
  - Eye irritation [Recovered/Resolved]

NARRATIVE: CASE EVENT DATE: 20161017
